FAERS Safety Report 4764039-9 (Version None)
Quarter: 2005Q3

REPORT INFORMATION
  Report Type: 
  Country: None (occurrence: None)
  Receive Date: 20050906
  Receipt Date: 20050823
  Transmission Date: 20060218
  Serious: Yes (Other)
  Sender: FDA-Public Use
  Company Number: 2005119498

PATIENT
  Age: 58 Year
  Sex: Male
  Weight: 103.4201 kg

DRUGS (4)
  1. DETROL LA [Suspect]
     Indication: POLLAKIURIA
     Dosage: 4 MG (4 MG, 1 IN 1 D), ORAL
     Route: 048
     Dates: start: 20040817, end: 20050819
  2. GLUCOTROL [Concomitant]
  3. AVANDAMET (METFORMIN HYDROCHLORIDE, ROSIGLITAZONE) [Concomitant]
  4. ZESTRIL [Concomitant]

REACTIONS (4)
  - ANURIA [None]
  - NEPHROLITHIASIS [None]
  - PROSTATIC DISORDER [None]
  - URINARY TRACT INFECTION [None]
